FAERS Safety Report 4501475-X (Version None)
Quarter: 2004Q4

REPORT INFORMATION
  Report Type: 
  Country: None (occurrence: None)
  Receive Date: 20041115
  Receipt Date: 20041105
  Transmission Date: 20050328
  Serious: Yes (Disabling)
  Sender: FDA-Public Use
  Company Number: US-MERCK-0411USA01032

PATIENT
  Age: 42 Year
  Sex: Female

DRUGS (11)
  1. VIOXX [Suspect]
     Indication: RHEUMATOID ARTHRITIS
     Route: 048
     Dates: start: 20020101, end: 20040930
  2. VIOXX [Suspect]
     Indication: FIBROMYALGIA
     Route: 048
     Dates: start: 20020101, end: 20040930
  3. ALLEGRA [Concomitant]
     Route: 065
  4. PROTONIX [Concomitant]
     Route: 065
  5. BENADRYL [Concomitant]
     Route: 065
  6. LEVOTHROID [Concomitant]
     Route: 065
  7. HYDROCHLOROTHIAZIDE [Concomitant]
     Route: 065
  8. COUMADIN [Concomitant]
     Route: 065
  9. PRINIVIL [Concomitant]
     Route: 065
  10. CLARITIN [Concomitant]
     Route: 065
  11. SKELAXIN [Concomitant]
     Route: 065

REACTIONS (3)
  - CATARACT [None]
  - CEREBROVASCULAR ACCIDENT [None]
  - HYPERTENSION [None]
